FAERS Safety Report 7539908-7 (Version None)
Quarter: 2011Q2

REPORT INFORMATION
  Report Type: 
  Country: None (occurrence: None)
  Receive Date: 20110610
  Receipt Date: 20110526
  Transmission Date: 20111010
  Serious: Yes (Hospitalization)
  Sender: FDA-Public Use
  Company Number: CZ-CELGENEUS-217-21880-11042696

PATIENT
  Sex: Male
  Weight: 104 kg

DRUGS (16)
  1. MILURIT [Concomitant]
     Route: 048
  2. FURON [Concomitant]
     Route: 048
     Dates: start: 20110322
  3. REVLIMID [Suspect]
     Indication: MULTIPLE MYELOMA
     Dosage: 10; 5 MG
     Route: 048
     Dates: start: 20110413, end: 20110418
  4. SUMETROLIM [Concomitant]
     Dosage: 480 MILLIGRAM
     Route: 048
  5. PARALEN [Concomitant]
     Route: 048
     Dates: start: 20110420, end: 20110422
  6. HERPESIN [Concomitant]
     Route: 048
     Dates: start: 20110421
  7. INDAP [Concomitant]
     Route: 048
  8. HUMULIN N [Concomitant]
     Route: 058
  9. FENTANYL [Concomitant]
     Dosage: 50 UG
     Route: 065
  10. FRAXIPARIN [Concomitant]
     Dosage: .6 MILLILITER
     Route: 058
  11. HELICID [Concomitant]
     Route: 048
  12. AGON [Concomitant]
     Route: 048
  13. HUMULIN R [Concomitant]
     Route: 058
  14. VALSACOR [Concomitant]
     Route: 048
  15. EUPHYLIN CR [Concomitant]
     Route: 048
  16. FUROSEMIDE [Concomitant]
     Route: 051
     Dates: start: 20110419, end: 20110420

REACTIONS (2)
  - C-REACTIVE PROTEIN INCREASED [None]
  - BODY TEMPERATURE INCREASED [None]
